APPROVED DRUG PRODUCT: GRANISETRON HYDROCHLORIDE
Active Ingredient: GRANISETRON HYDROCHLORIDE
Strength: EQ 1MG BASE
Dosage Form/Route: TABLET;ORAL
Application: A077842 | Product #001
Applicant: HIKMA PHARMACEUTICALS USA INC
Approved: Dec 31, 2007 | RLD: No | RS: No | Type: DISCN